FAERS Safety Report 15412790 (Version 7)
Quarter: 2020Q3

REPORT INFORMATION
  Report Type: Report from Study
  Country: FR (occurrence: FR)
  Receive Date: 20180921
  Receipt Date: 20200827
  Transmission Date: 20201105
  Serious: Yes (Other)
  Sender: FDA-Public Use
  Company Number: PHHO2018FR010307

PATIENT
  Age: 72 Year
  Sex: Female
  Weight: 47 kg

DRUGS (4)
  1. SPARTALIZUMAB [Suspect]
     Active Substance: SPARTALIZUMAB
     Indication: METASTATIC MALIGNANT MELANOMA
     Dosage: 400 MG, Q4W
     Route: 042
     Dates: start: 20171227
  2. DABRAFENIB [Suspect]
     Active Substance: DABRAFENIB
     Indication: METASTATIC MALIGNANT MELANOMA
     Dosage: 150 MG, BID
     Route: 048
     Dates: start: 20171227
  3. DABRAFENIB [Suspect]
     Active Substance: DABRAFENIB
     Dosage: 150 MG, BID
     Route: 048
     Dates: start: 20181011
  4. TRAMETINIB [Suspect]
     Active Substance: TRAMETINIB
     Indication: METASTATIC MALIGNANT MELANOMA
     Dosage: 2 MG, QD
     Route: 048
     Dates: start: 20171227, end: 20180914

REACTIONS (1)
  - Left ventricular dysfunction [Recovered/Resolved]

NARRATIVE: CASE EVENT DATE: 20180912
